FAERS Safety Report 15011168 (Version 1)
Quarter: 2018Q2

REPORT INFORMATION
  Report Type: Spontaneous
  Country: NL (occurrence: NL)
  Receive Date: 20180614
  Receipt Date: 20180614
  Transmission Date: 20180711
  Serious: Yes (Death, Life-Threatening, Other)
  Sender: FDA-Public Use
  Company Number: NL-CONCORDIA PHARMACEUTICALS INC.-E2B_00012250

PATIENT
  Age: 69 Year
  Sex: Female

DRUGS (2)
  1. PREDNISOLONE. [Suspect]
     Active Substance: PREDNISOLONE
  2. ALFACALCIDOL [Suspect]
     Active Substance: ALFACALCIDOL

REACTIONS (3)
  - Calciphylaxis [Fatal]
  - Breast necrosis [Fatal]
  - Sepsis [Fatal]

NARRATIVE: CASE EVENT DATE: 2017
